FAERS Safety Report 5743804-5 (Version None)
Quarter: 2008Q2

REPORT INFORMATION
  Report Type: 
  Country: None (occurrence: None)
  Receive Date: 20080519
  Receipt Date: 20080519
  Transmission Date: 20081010
  Serious: No
  Sender: FDA-Public Use
  Company Number: None

PATIENT
  Age: 45 Year
  Sex: Female
  Weight: 48.9885 kg

DRUGS (1)
  1. LEVAQUIN [Suspect]
     Indication: CYSTOPEXY
     Dosage: 1 TABLET            1 X DAY           PO
     Route: 048
     Dates: start: 20080514, end: 20080515

REACTIONS (5)
  - INSOMNIA [None]
  - LIP SWELLING [None]
  - MUSCLE TWITCHING [None]
  - PALATAL OEDEMA [None]
  - PHARYNGOLARYNGEAL PAIN [None]
